FAERS Safety Report 9134002 (Version 2)
Quarter: 2013Q2

REPORT INFORMATION
  Report Type: Spontaneous
  Country: DE (occurrence: DE)
  Receive Date: 20130304
  Receipt Date: 20130416
  Transmission Date: 20140414
  Serious: Yes (Life-Threatening, Hospitalization)
  Sender: FDA-Public Use
  Company Number: DE-AMGEN-DEUSP2013014351

PATIENT
  Age: 69 Year
  Sex: Female

DRUGS (1)
  1. ENBREL [Suspect]
     Indication: RHEUMATOID ARTHRITIS
     Dosage: 50 MG, WEEKLY
     Dates: start: 20040720

REACTIONS (7)
  - Ileus paralytic [Recovering/Resolving]
  - Oedematous pancreatitis [Recovering/Resolving]
  - Adenocarcinoma [Recovering/Resolving]
  - Cholelithiasis [Recovering/Resolving]
  - Pseudomyxoma peritonei [Recovering/Resolving]
  - Abdominal adhesions [Recovering/Resolving]
  - Gastrointestinal disorder postoperative [Recovering/Resolving]
